FAERS Safety Report 5626367-4 (Version None)
Quarter: 2008Q1

REPORT INFORMATION
  Report Type: 
  Country: None (occurrence: None)
  Receive Date: 20080213
  Receipt Date: 20080213
  Transmission Date: 20080703
  Serious: Yes (Other)
  Sender: FDA-Public Use
  Company Number: None

PATIENT
  Age: 63 Year
  Sex: Female
  Weight: 52.1637 kg

DRUGS (1)
  1. PREVACID [Suspect]
     Indication: OESOPHAGITIS
     Dosage: 15 MG. SOLUTAB  ONCE DAILY PO
     Route: 048
     Dates: start: 20080207, end: 20080208

REACTIONS (9)
  - BALANCE DISORDER [None]
  - DECREASED APPETITE [None]
  - DIZZINESS [None]
  - DRY MOUTH [None]
  - DYSGEUSIA [None]
  - DYSPHAGIA [None]
  - FEELING ABNORMAL [None]
  - GLOSSODYNIA [None]
  - NAUSEA [None]
